FAERS Safety Report 9660937 (Version 2)
Quarter: 2013Q4

REPORT INFORMATION
  Report Type: Spontaneous
  Country: MA (occurrence: MA)
  Receive Date: 20131031
  Receipt Date: 20131031
  Transmission Date: 20140711
  Serious: Yes (Hospitalization)
  Sender: FDA-Public Use
  Company Number: MA-JNJFOC-20130619499

PATIENT
  Age: 33 Year
  Sex: Female
  Weight: 62 kg

DRUGS (4)
  1. REMICADE [Suspect]
     Indication: CROHN^S DISEASE
     Route: 042
     Dates: start: 20130513
  2. CORTANCYL [Concomitant]
     Route: 065
  3. LASILIX [Concomitant]
     Route: 065
  4. ALDACTONE [Concomitant]
     Route: 065

REACTIONS (1)
  - Glomerular vascular disorder [Unknown]
